FAERS Safety Report 20540749 (Version 1)
Quarter: 2022Q1

REPORT INFORMATION
  Report Type: Report from Study
  Country: CA (occurrence: CA)
  Receive Date: 20220302
  Receipt Date: 20220302
  Transmission Date: 20220423
  Serious: Yes (Other)
  Sender: FDA-Public Use
  Company Number: CA-JNJFOC-20210949827

PATIENT
  Age: 38 Year
  Sex: Female
  Weight: 74.5 kg

DRUGS (1)
  1. REMICADE [Suspect]
     Active Substance: INFLIXIMAB
     Indication: Colitis ulcerative
     Dosage: INFUSION RECEIVED ON 11/AUG/2021
     Route: 042
     Dates: start: 20200615

REACTIONS (3)
  - Eczema [Unknown]
  - Pruritus [Unknown]
  - Infusion related reaction [Unknown]
